FAERS Safety Report 18255032 (Version 2)
Quarter: 2020Q4

REPORT INFORMATION
  Report Type: Spontaneous
  Country: DE (occurrence: DE)
  Receive Date: 20200910
  Receipt Date: 20201219
  Transmission Date: 20210113
  Serious: Yes (Other)
  Sender: FDA-Public Use
  Company Number: NVSC2020DE191265

PATIENT
  Sex: Female

DRUGS (44)
  1. VALSARTAN. [Suspect]
     Active Substance: VALSARTAN
     Dosage: 80 MG
     Route: 065
     Dates: start: 20160222
  2. VALSARTAN - 1 A PHARMA PLUS 80 MG/12,5 MG FILMTABLETTEN [Suspect]
     Active Substance: HYDROCHLOROTHIAZIDE\VALSARTAN
     Dosage: 80 MG / 12.5 MG
     Route: 065
     Dates: start: 20161022
  3. VALSARTAN - 1 A PHARMA PLUS 80 MG/12,5 MG FILMTABLETTEN [Suspect]
     Active Substance: HYDROCHLOROTHIAZIDE\VALSARTAN
     Dosage: 80 MG / 12.5 MG
     Route: 065
     Dates: start: 20170516
  4. VALSARTAN - 1 A PHARMA PLUS 80 MG/12,5 MG FILMTABLETTEN [Suspect]
     Active Substance: HYDROCHLOROTHIAZIDE\VALSARTAN
     Dosage: 80 MG / 12.5 MG
     Route: 065
     Dates: start: 20171116
  5. VALSARTAN. [Suspect]
     Active Substance: VALSARTAN
     Dosage: 2 DF, QD(1X80MG(160 MG DAILY DOSE)
     Route: 065
     Dates: start: 2012, end: 201711
  6. VALSARTAN. [Suspect]
     Active Substance: VALSARTAN
     Dosage: 80 MG
     Route: 065
     Dates: start: 20160526
  7. VALSARTAN. [Suspect]
     Active Substance: VALSARTAN
     Dosage: 80 MG
     Route: 065
     Dates: start: 20130830
  8. VALSARTAN. [Suspect]
     Active Substance: VALSARTAN
     Dosage: 80 MG
     Route: 065
     Dates: start: 20140612
  9. VALSARTAN. [Suspect]
     Active Substance: VALSARTAN
     Dosage: 80 MG
     Route: 065
     Dates: start: 20140925
  10. VALSARTAN. [Suspect]
     Active Substance: VALSARTAN
     Dosage: 80 MG
     Route: 065
     Dates: start: 20150416
  11. VALSARTAN. [Suspect]
     Active Substance: VALSARTAN
     Dosage: 80 MG
     Route: 065
     Dates: start: 20150723
  12. VALSARTAN - 1 A PHARMA PLUS 80 MG/12,5 MG FILMTABLETTEN [Suspect]
     Active Substance: HYDROCHLOROTHIAZIDE\VALSARTAN
     Dosage: 80 MG / 12.5 MG
     Route: 065
     Dates: start: 20160905
  13. VALSARTAN - 1 A PHARMA PLUS 80 MG/12,5 MG FILMTABLETTEN [Suspect]
     Active Substance: HYDROCHLOROTHIAZIDE\VALSARTAN
     Dosage: 80 MG / 12.5 MG
     Route: 065
     Dates: start: 20170323
  14. VALSARTAN. [Suspect]
     Active Substance: VALSARTAN
     Dosage: 80 MG
     Route: 065
     Dates: start: 20120730
  15. VALSARTAN. [Suspect]
     Active Substance: VALSARTAN
     Dosage: 80 MG
     Route: 065
     Dates: start: 20121105
  16. VALSARTAN. [Suspect]
     Active Substance: VALSARTAN
     Dosage: 80 MG
     Route: 065
     Dates: start: 20160104
  17. VALSARTAN - 1 A PHARMA PLUS 80 MG/12,5 MG FILMTABLETTEN [Suspect]
     Active Substance: HYDROCHLOROTHIAZIDE\VALSARTAN
     Indication: HYPERTENSION
     Dosage: 80 MG / 12.5 MG
     Route: 065
     Dates: start: 20140925, end: 201501
  18. VALSARTAN - 1 A PHARMA PLUS 80 MG/12,5 MG FILMTABLETTEN [Suspect]
     Active Substance: HYDROCHLOROTHIAZIDE\VALSARTAN
     Dosage: 80 MG / 12.5 MG
     Route: 065
     Dates: start: 20160701
  19. VALSARTAN - 1 A PHARMA PLUS 80 MG/12,5 MG FILMTABLETTEN [Suspect]
     Active Substance: HYDROCHLOROTHIAZIDE\VALSARTAN
     Dosage: 80 MG / 12.5 MG
     Route: 065
     Dates: start: 20170131
  20. VALSARTAN - 1 A PHARMA PLUS 80 MG/12,5 MG FILMTABLETTEN [Suspect]
     Active Substance: HYDROCHLOROTHIAZIDE\VALSARTAN
     Dosage: 80 MG / 12.5 MG, BID
     Route: 065
     Dates: start: 201409, end: 201501
  21. PARACETAMOL [Concomitant]
     Active Substance: ACETAMINOPHEN
     Indication: PRODUCT USED FOR UNKNOWN INDICATION
     Dosage: UNK
     Route: 065
  22. VALSARTAN. [Suspect]
     Active Substance: VALSARTAN
     Dosage: 80 MG
     Route: 065
     Dates: start: 20130221
  23. VALSARTAN. [Suspect]
     Active Substance: VALSARTAN
     Dosage: 80 MG
     Route: 065
     Dates: start: 20160630
  24. VALSARTAN. [Suspect]
     Active Substance: VALSARTAN
     Dosage: 80 MG
     Route: 065
     Dates: start: 20160825
  25. VALSARTAN. [Suspect]
     Active Substance: VALSARTAN
     Dosage: 80 MG
     Route: 065
     Dates: start: 20171115
  26. VALSARTAN - 1 A PHARMA PLUS 80 MG/12,5 MG FILMTABLETTEN [Suspect]
     Active Substance: HYDROCHLOROTHIAZIDE\VALSARTAN
     Dosage: 80 MG / 12.5 MG
     Route: 065
     Dates: start: 20150728
  27. VALSARTAN - 1 A PHARMA PLUS 80 MG/12,5 MG FILMTABLETTEN [Suspect]
     Active Substance: HYDROCHLOROTHIAZIDE\VALSARTAN
     Dosage: 80 MG / 12.5 MG
     Route: 065
     Dates: start: 20160411
  28. VALSARTAN - 1 A PHARMA PLUS 80 MG/12,5 MG FILMTABLETTEN [Suspect]
     Active Substance: HYDROCHLOROTHIAZIDE\VALSARTAN
     Dosage: 80 MG / 12.5 MG
     Route: 065
     Dates: start: 20160531
  29. VALSARTAN - 1 A PHARMA PLUS 80 MG/12,5 MG FILMTABLETTEN [Suspect]
     Active Substance: HYDROCHLOROTHIAZIDE\VALSARTAN
     Dosage: 80 MG / 12.5 MG
     Route: 065
     Dates: start: 20170801
  30. VALSARTAN. [Suspect]
     Active Substance: VALSARTAN
     Indication: HYPERTENSION
     Dosage: 80 MG / 12.5 MG, BID
     Route: 065
     Dates: start: 20120423, end: 201409
  31. VALSARTAN. [Suspect]
     Active Substance: VALSARTAN
     Dosage: 80 MG
     Route: 065
     Dates: start: 20120618
  32. VALSARTAN. [Suspect]
     Active Substance: VALSARTAN
     Dosage: 80 MG
     Route: 065
     Dates: start: 20130321
  33. VALSARTAN. [Suspect]
     Active Substance: VALSARTAN
     Dosage: 80 MG
     Route: 065
     Dates: start: 20131029
  34. VALSARTAN - 1 A PHARMA PLUS 80 MG/12,5 MG FILMTABLETTEN [Suspect]
     Active Substance: HYDROCHLOROTHIAZIDE\VALSARTAN
     Dosage: 80 MG / 12.5 MG
     Route: 065
     Dates: start: 20150423
  35. VALSARTAN - 1 A PHARMA PLUS 80 MG/12,5 MG FILMTABLETTEN [Suspect]
     Active Substance: HYDROCHLOROTHIAZIDE\VALSARTAN
     Dosage: 80 MG / 12.5 MG
     Route: 065
     Dates: start: 20151103
  36. VALSARTAN - 1 A PHARMA PLUS 80 MG/12,5 MG FILMTABLETTEN [Suspect]
     Active Substance: HYDROCHLOROTHIAZIDE\VALSARTAN
     Dosage: 80 MG / 12.5 MG
     Route: 065
     Dates: start: 20161212
  37. VALSARTAN. [Suspect]
     Active Substance: VALSARTAN
     Dosage: 80 MG
     Route: 065
     Dates: start: 20130330
  38. VALSARTAN. [Suspect]
     Active Substance: VALSARTAN
     Dosage: 80 MG
     Route: 065
     Dates: start: 20140220
  39. VALSARTAN. [Suspect]
     Active Substance: VALSARTAN
     Dosage: 80 MG
     Route: 065
     Dates: start: 20150105
  40. VALSARTAN. [Suspect]
     Active Substance: VALSARTAN
     Dosage: 80 MG
     Route: 065
     Dates: start: 20151103
  41. VALSARTAN. [Suspect]
     Active Substance: VALSARTAN
     Dosage: 80 MG
     Route: 065
     Dates: start: 20160404
  42. VALSARTAN - 1 A PHARMA PLUS 80 MG/12,5 MG FILMTABLETTEN [Suspect]
     Active Substance: HYDROCHLOROTHIAZIDE\VALSARTAN
     Dosage: 80 MG / 12.5 MG, BID
     Route: 065
     Dates: start: 201504, end: 20180215
  43. VALSARTAN - 1 A PHARMA PLUS 80 MG/12,5 MG FILMTABLETTEN [Suspect]
     Active Substance: HYDROCHLOROTHIAZIDE\VALSARTAN
     Dosage: 80 MG / 12.5 MG
     Route: 065
     Dates: start: 20160104
  44. VALSARTAN - 1 A PHARMA PLUS 80 MG/12,5 MG FILMTABLETTEN [Suspect]
     Active Substance: HYDROCHLOROTHIAZIDE\VALSARTAN
     Dosage: 80 MG / 12.5 MG
     Route: 065
     Dates: start: 20160223

REACTIONS (10)
  - Hypothyroidism [Unknown]
  - Emotional distress [Unknown]
  - Seasonal allergy [Unknown]
  - Headache [Not Recovered/Not Resolved]
  - Autoimmune thyroiditis [Unknown]
  - Glaucoma [Unknown]
  - Restlessness [Not Recovered/Not Resolved]
  - Nausea [Not Recovered/Not Resolved]
  - Dry mouth [Not Recovered/Not Resolved]
  - Quality of life decreased [Unknown]

NARRATIVE: CASE EVENT DATE: 2012
